FAERS Safety Report 8299524-9 (Version None)
Quarter: 2012Q2

REPORT INFORMATION
  Report Type: 
  Country: None (occurrence: None)
  Receive Date: 20120419
  Receipt Date: 20120403
  Transmission Date: 20120825
  Serious: Yes (Other)
  Sender: FDA-Public Use
  Company Number: CHPA2012US008776

PATIENT
  Age: 43 Year
  Sex: Female

DRUGS (1)
  1. EXCEDRIN (MIGRAINE) [Suspect]
     Indication: HEADACHE
     Dosage: 2 DF, UNK
     Route: 048

REACTIONS (7)
  - ANXIETY [None]
  - EUPHORIC MOOD [None]
  - HYPOAESTHESIA [None]
  - PALPITATIONS [None]
  - PARAESTHESIA [None]
  - SOMNOLENCE [None]
  - MEMORY IMPAIRMENT [None]
